FAERS Safety Report 16849859 (Version 1)
Quarter: 2019Q4

REPORT INFORMATION
  Report Type: Spontaneous
  Country: US (occurrence: US)
  Receive Date: 20190925
  Receipt Date: 20190925
  Transmission Date: 20200122
  Serious: Yes (Hospitalization)
  Sender: FDA-Public Use
  Company Number: None

PATIENT
  Age: 65 Year
  Sex: Male

DRUGS (6)
  1. PRALUENT [Suspect]
     Active Substance: ALIROCUMAB
     Indication: PRODUCT USED FOR UNKNOWN INDICATION
     Dosage: ?          OTHER FREQUENCY:EVERY 2 WEEKS;?
     Route: 058
     Dates: start: 20190716
  2. LOSARTAN. [Concomitant]
     Active Substance: LOSARTAN
  3. DICLOFENAC [Concomitant]
     Active Substance: DICLOFENAC
  4. METFORMIN [Concomitant]
     Active Substance: METFORMIN HYDROCHLORIDE
  5. FLUTICASONE. [Concomitant]
     Active Substance: FLUTICASONE
  6. GLIMEPRIDE [Concomitant]
     Active Substance: GLIMEPIRIDE

REACTIONS (2)
  - Cardiac disorder [None]
  - Therapy cessation [None]

NARRATIVE: CASE EVENT DATE: 20190701
